FAERS Safety Report 7587692-3 (Version None)
Quarter: 2011Q3

REPORT INFORMATION
  Report Type: 
  Country: None (occurrence: None)
  Receive Date: 20110704
  Receipt Date: 20110629
  Transmission Date: 20111222
  Serious: Yes (Death, Hospitalization, Other)
  Sender: FDA-Public Use
  Company Number: PHHY2010JP42987

PATIENT
  Sex: Male

DRUGS (14)
  1. TECELEUKIN [Concomitant]
     Indication: METASTATIC RENAL CELL CARCINOMA
     Dosage: 700000 IU, UNK
     Dates: start: 20060515, end: 20060701
  2. AFINITOR [Suspect]
     Dosage: 10 MG, DAILY
     Route: 048
     Dates: start: 20100525, end: 20100601
  3. AFINITOR [Suspect]
     Dosage: 10 MG, DAILY
     Route: 048
     Dates: start: 20100702, end: 20101118
  4. INTERFERON ALFA [Concomitant]
     Indication: METASTATIC RENAL CELL CARCINOMA
     Dosage: 3000000 IU, UNK
     Dates: start: 20031101
  5. MEPTIN [Concomitant]
     Dosage: 100 UG, UNK
     Route: 048
     Dates: start: 20100401, end: 20101026
  6. KERATINAMIN [Concomitant]
     Route: 061
  7. SORAFENIB TOSILATE [Concomitant]
     Indication: METASTATIC RENAL CELL CARCINOMA
     Dosage: 800 MG, UNK
     Route: 048
     Dates: start: 20080529, end: 20091101
  8. DECADRON [Concomitant]
     Dosage: 4 MG, UNK
     Route: 048
     Dates: start: 20101124, end: 20101207
  9. OTHER ANALGESICS AND ANTIPYRETICS [Concomitant]
  10. AFINITOR [Suspect]
     Indication: RENAL CELL CARCINOMA
     Dosage: 10 MG, DAILY
     Route: 048
     Dates: start: 20100423, end: 20100506
  11. AFINITOR [Suspect]
     Dosage: 10 MG DAILY
     Route: 048
     Dates: end: 20100701
  12. PROMAC [Concomitant]
     Dosage: 150 MG, UNK
     Route: 048
     Dates: start: 20100401, end: 20101026
  13. SUNITINIB MALATE [Concomitant]
     Indication: METASTATIC RENAL CELL CARCINOMA
     Dosage: 37.5 MG, UNK
     Route: 048
     Dates: start: 20091130, end: 20100412
  14. DEXALTIN [Concomitant]
     Route: 061

REACTIONS (6)
  - PLATELET COUNT DECREASED [None]
  - NEOPLASM MALIGNANT [None]
  - METASTASES TO CENTRAL NERVOUS SYSTEM [None]
  - CEREBRAL HAEMORRHAGE [None]
  - PNEUMONIA [None]
  - PLEURAL EFFUSION [None]
